FAERS Safety Report 8509853 (Version 2)
Quarter: 2012Q4

REPORT INFORMATION
  Report Type: 
  Country: GB (occurrence: GB)
  Receive Date: 20120413
  Receipt Date: 20120912
  Transmission Date: 20130627
  Serious: Yes (Death, Other)
  Sender: FDA-Public Use
  Company Number: PHFR2012GB002223

PATIENT
  Sex: Male

DRUGS (4)
  1. CLOZARIL [Suspect]
     Indication: SCHIZOPHRENIA
     Dosage: 450 mg, UNK
     Route: 048
     Dates: start: 200306
  2. RAMIPRIL [Concomitant]
     Dosage: 5 mg, Daily
     Route: 048
  3. METFORMIN [Concomitant]
     Dosage: 1 g
  4. SIMVASTATIN [Concomitant]

REACTIONS (8)
  - Myocardial ischaemia [Fatal]
  - Hypertension [Fatal]
  - Arteriosclerosis coronary artery [Fatal]
  - Hepatic steatosis [Fatal]
  - Type 2 diabetes mellitus [Fatal]
  - Electrocardiogram change [Not Recovered/Not Resolved]
  - Dyspnoea [Not Recovered/Not Resolved]
  - Weight increased [Not Recovered/Not Resolved]
